FAERS Safety Report 16431366 (Version 1)
Quarter: 2019Q2

REPORT INFORMATION
  Report Type: Spontaneous
  Country: US (occurrence: US)
  Receive Date: 20190614
  Receipt Date: 20190614
  Transmission Date: 20190711
  Serious: No
  Sender: FDA-Public Use
  Company Number: US-MYLANLABS-2019M1052799

PATIENT
  Sex: Female
  Weight: 147 kg

DRUGS (2)
  1. FENTANYL TRANSDERMAL SYSTEM [Suspect]
     Active Substance: FENTANYL
     Indication: NEUROPATHY PERIPHERAL
     Dosage: 1 DOSAGE FORM, Q3D
     Route: 062
     Dates: start: 20190528
  2. FENTANYL TRANSDERMAL SYSTEM [Suspect]
     Active Substance: FENTANYL
     Indication: BACK PAIN

REACTIONS (2)
  - Product adhesion issue [Unknown]
  - Drug ineffective [Not Recovered/Not Resolved]
